FAERS Safety Report 9034684 (Version 1)
Quarter: 2013Q1

REPORT INFORMATION
  Report Type: Spontaneous
  Country: US (occurrence: None)
  Receive Date: 20130111
  Receipt Date: 20130111
  Transmission Date: 20140127
  Serious: Yes (Death)
  Sender: FDA-Public Use
  Company Number: DSA_61800_2013

PATIENT
  Age: 44 Year
  Sex: Male

DRUGS (1)
  1. XENAZINE 12.5 MG (NOT SPECIFIED) [Suspect]
     Indication: HUNTINGTON^S DISEASE
     Dosage: (12.5  MG   TID   ORAL)?(09/28/2012 TO  12/24/2012)
     Route: 048
     Dates: start: 20120928, end: 20121224

REACTIONS (1)
  - Death [None]
